FAERS Safety Report 5273340-4 (Version None)
Quarter: 2007Q1

REPORT INFORMATION
  Report Type: 
  Country: None (occurrence: None)
  Receive Date: 20070319
  Receipt Date: 20070228
  Transmission Date: 20070707
  Serious: Yes (Other)
  Sender: FDA-Public Use
  Company Number: 14883

PATIENT
  Age: 37 Year
  Sex: Male

DRUGS (2)
  1. LOW-DOSE METHOTREXATE [Suspect]
     Indication: PSORIASIS
     Dosage: 12.5 MG WEEKLY
  2. SULFASALAZINE [Suspect]
     Indication: PSORIASIS
     Dosage: 2 G DAILY

REACTIONS (2)
  - CUTANEOUS LEISHMANIASIS [None]
  - TRANSAMINASES INCREASED [None]
